FAERS Safety Report 5697917-7 (Version None)
Quarter: 2008Q2

REPORT INFORMATION
  Report Type: 
  Country: None (occurrence: None)
  Receive Date: 20080408
  Receipt Date: 20080328
  Transmission Date: 20081010
  Serious: Yes (Hospitalization)
  Sender: FDA-Public Use
  Company Number: CH-ROCHE-555822

PATIENT
  Age: 45 Year
  Sex: Female
  Weight: 60 kg

DRUGS (3)
  1. XELODA [Suspect]
     Route: 048
     Dates: start: 20080214, end: 20080217
  2. ELOXATIN [Suspect]
     Route: 042
     Dates: start: 20080215, end: 20080215
  3. FARMORUBICIN [Suspect]
     Route: 042
     Dates: start: 20080215, end: 20080215

REACTIONS (1)
  - PANCREATITIS [None]
